FAERS Safety Report 5654551-2 (Version None)
Quarter: 2008Q1

REPORT INFORMATION
  Report Type: 
  Country: None (occurrence: None)
  Receive Date: 20080307
  Receipt Date: 20080227
  Transmission Date: 20080703
  Serious: Yes (Hospitalization)
  Sender: FDA-Public Use
  Company Number: US-JNJFOC-20080300237

PATIENT
  Sex: Male
  Weight: 65.77 kg

DRUGS (1)
  1. TYLENOL W/ CODEINE NO. 3 [Suspect]
     Indication: BACK PAIN
     Dosage: 30/300MG
     Route: 048

REACTIONS (5)
  - ANXIETY [None]
  - BACK INJURY [None]
  - ERYTHEMA [None]
  - FIBULA FRACTURE [None]
  - PRURITUS [None]
